FAERS Safety Report 25896631 (Version 3)
Quarter: 2025Q4

REPORT INFORMATION
  Report Type: Spontaneous
  Country: US (occurrence: US)
  Receive Date: 20251008
  Receipt Date: 20251114
  Transmission Date: 20260117
  Serious: Yes (Other)
  Sender: FERRING
  Company Number: US-FERRINGPH-2025FE05788

PATIENT

DRUGS (3)
  1. DDAVP [Suspect]
     Active Substance: DESMOPRESSIN ACETATE
     Indication: Diabetes insipidus
     Dosage: 3 TABLETS PER DAY
     Route: 065
  2. DDAVP [Suspect]
     Active Substance: DESMOPRESSIN ACETATE
     Dosage: 4-6 TABLETS PER DAY
     Route: 065
  3. DESMOPRESSIN [Suspect]
     Active Substance: DESMOPRESSIN
     Indication: Diabetes insipidus
     Route: 065

REACTIONS (3)
  - Seizure [Unknown]
  - Drug ineffective [Unknown]
  - Product storage error [Unknown]
